FAERS Safety Report 5249798-3 (Version None)
Quarter: 2007Q1

REPORT INFORMATION
  Report Type: 
  Country: None (occurrence: None)
  Receive Date: 20070228
  Receipt Date: 20070218
  Transmission Date: 20070707
  Serious: Yes (Disabling, Other)
  Sender: FDA-Public Use
  Company Number: 2007PK00394

PATIENT
  Sex: Female

DRUGS (2)
  1. BUPIVACAINE [Suspect]
     Indication: ANAESTHESIA
     Route: 053
  2. PRILOCAIN [Suspect]
     Indication: ANAESTHESIA
     Route: 053

REACTIONS (1)
  - HORNER'S SYNDROME [None]
